FAERS Safety Report 10133479 (Version 2)
Quarter: 2014Q2

REPORT INFORMATION
  Report Type: Spontaneous
  Country: DE (occurrence: DE)
  Receive Date: 20140428
  Receipt Date: 20140606
  Transmission Date: 20141212
  Serious: Yes (Hospitalization)
  Sender: FDA-Public Use
  Company Number: DE-B.I. PHARMACEUTICALS,INC./RIDGEFIELD-2014-BI-18354DE

PATIENT
  Age: 65 Year
  Sex: Female
  Weight: 70 kg

DRUGS (4)
  1. PRADAXA [Suspect]
     Indication: ATRIAL FIBRILLATION
     Dosage: 300 MG
     Route: 048
     Dates: start: 20131001, end: 20140226
  2. ENALAPRIL [Concomitant]
     Indication: HYPERTENSION
     Dosage: 10 MG
     Route: 048
     Dates: start: 20130122
  3. ASS [Concomitant]
     Indication: PERIPHERAL VASCULAR DISORDER
     Dosage: 100 MG
     Route: 048
     Dates: start: 20140226
  4. NEBILET [Concomitant]
     Indication: HYPERTENSION
     Dosage: 5 MG
     Route: 048
     Dates: start: 20140319

REACTIONS (5)
  - Peripheral arterial occlusive disease [Unknown]
  - Coagulation factor VIII level increased [Unknown]
  - Arterial occlusive disease [Unknown]
  - Peripheral ischaemia [Unknown]
  - Iliac artery occlusion [Unknown]
